FAERS Safety Report 8952513 (Version 2)
Quarter: 2013Q4

REPORT INFORMATION
  Report Type: Spontaneous
  Country: US (occurrence: US)
  Receive Date: 20121205
  Receipt Date: 20131227
  Transmission Date: 20140711
  Serious: Yes (Hospitalization, Other)
  Sender: FDA-Public Use
  Company Number: US-BAYER-2012-126080

PATIENT
  Age: 32 Year
  Sex: Female
  Weight: 111.11 kg

DRUGS (14)
  1. YAZ [Suspect]
     Indication: PREMENSTRUAL DYSPHORIC DISORDER
     Dosage: UNK
     Dates: start: 2001, end: 2011
  2. PENICILLIN VK [Concomitant]
     Dosage: 500 MG, UNK
  3. HYDROCODONE W/APAP [Concomitant]
     Dosage: 5-500 TAB
  4. CEFUROXIME [Concomitant]
     Dosage: 250 MG, UNK
  5. METHYLPREDNISOLONE [Concomitant]
     Dosage: 4 MG, UNK
  6. METFORMIN [Concomitant]
     Dosage: 500 MG, BID
     Dates: start: 2009
  7. METFORMIN [Concomitant]
     Dosage: 500 MG, BID
     Dates: start: 20100614
  8. ATIVAN [Concomitant]
     Dosage: UNK, PRN
     Dates: start: 20100614
  9. BISOPROLOL W/HYDROCHLOROTHIAZIDE [Concomitant]
     Dosage: 5/6.25 MG DAILY
     Dates: start: 20100614
  10. PREVACID [Concomitant]
     Dosage: 30 MG, DAILY
     Dates: start: 20100614
  11. ZIAC [Concomitant]
  12. LISINOPRIL [Concomitant]
  13. SIMVASTATIN [Concomitant]
  14. NITROSTAT [Concomitant]

REACTIONS (3)
  - Myocardial infarction [None]
  - Injury [None]
  - Thrombosis [None]
